FAERS Safety Report 23015904 (Version 2)
Quarter: 2023Q4

REPORT INFORMATION
  Report Type: Report from Study
  Country: MY (occurrence: MY)
  Receive Date: 20231002
  Receipt Date: 20231021
  Transmission Date: 20240109
  Serious: Yes (Death, Hospitalization, Other)
  Sender: FDA-Public Use
  Company Number: MY-OTSUKA-2023_025058

PATIENT
  Age: 37 Year
  Sex: Female

DRUGS (1)
  1. PONATINIB [Suspect]
     Active Substance: PONATINIB
     Indication: Chronic myeloid leukaemia
     Dosage: 45 MILLIGRAM, QD
     Route: 048
     Dates: start: 20230317

REACTIONS (3)
  - Death [Fatal]
  - Blast cell count increased [Unknown]
  - Disease progression [Unknown]

NARRATIVE: CASE EVENT DATE: 20230926
